FAERS Safety Report 9374635 (Version 2)
Quarter: 2013Q3

REPORT INFORMATION
  Report Type: Spontaneous
  Country: JP (occurrence: None)
  Receive Date: 20130624
  Receipt Date: 20130703
  Transmission Date: 20140515
  Serious: Yes (Hospitalization)
  Sender: FDA-Public Use
  Company Number: AE-SPE-2013-017

PATIENT
  Age: 3 Year
  Sex: Female

DRUGS (1)
  1. MEIACT MS [Suspect]
     Indication: NASOPHARYNGITIS
     Route: 048
     Dates: start: 201205, end: 20120722

REACTIONS (4)
  - Convulsion [None]
  - Hypoglycaemia [None]
  - Ammonia increased [None]
  - Carnitine deficiency [None]
